FAERS Safety Report 5373647-6 (Version None)
Quarter: 2007Q2

REPORT INFORMATION
  Report Type: 
  Country: None (occurrence: None)
  Receive Date: 20070627
  Receipt Date: 20060502
  Transmission Date: 20071010
  Serious: Yes (Disabling)
  Sender: FDA-Public Use
  Company Number: 444216

PATIENT
  Age: 80 Year
  Sex: Male
  Weight: 90.7 kg

DRUGS (3)
  1. XELODA [Suspect]
     Indication: COLON CANCER METASTATIC
     Dosage: 2000 MG 2 PER DAY ORAL
     Route: 048
     Dates: start: 20051214
  2. ACYCLOVIR [Suspect]
     Indication: DEAFNESS
     Dosage: 800 MG ORAL
     Route: 048
     Dates: start: 20060215
  3. PREDNISONE TAB [Suspect]
     Indication: DEAFNESS
     Dosage: 5 MG ORAL
     Route: 048
     Dates: start: 20060215, end: 20060215

REACTIONS (21)
  - AGEUSIA [None]
  - BURNING SENSATION [None]
  - CONSTIPATION [None]
  - DEHYDRATION [None]
  - DIARRHOEA [None]
  - DISEASE PROGRESSION [None]
  - ERYTHEMA [None]
  - FATIGUE [None]
  - FEELING HOT [None]
  - FLUSHING [None]
  - MALAISE [None]
  - NAUSEA [None]
  - OEDEMA [None]
  - OEDEMA PERIPHERAL [None]
  - ORAL PAIN [None]
  - PALMAR-PLANTAR ERYTHRODYSAESTHESIA SYNDROME [None]
  - RASH [None]
  - SKIN EXFOLIATION [None]
  - SUNBURN [None]
  - THROMBOSIS [None]
  - VOMITING [None]
